FAERS Safety Report 17622640 (Version 1)
Quarter: 2020Q2

REPORT INFORMATION
  Report Type: Spontaneous
  Country: FR (occurrence: FR)
  Receive Date: 20200403
  Receipt Date: 20200403
  Transmission Date: 20200713
  Serious: Yes (Hospitalization)
  Sender: FDA-Public Use
  Company Number: FR-MYLANLABS-2020M1032675

PATIENT
  Age: 67 Year
  Sex: Female
  Weight: 69 kg

DRUGS (3)
  1. PARACETAMOL [Suspect]
     Active Substance: ACETAMINOPHEN
     Indication: PAIN
     Dosage: 1 A 2 COMPRIMES PAR JOUR
     Route: 048
     Dates: start: 201911
  2. TRAMADOL. [Suspect]
     Active Substance: TRAMADOL
     Indication: PAIN
     Dosage: LIBERATION PROLONGEE
     Route: 048
     Dates: start: 20200106, end: 20200106
  3. TRAMADOL. [Suspect]
     Active Substance: TRAMADOL
     Dosage: 7 DOSAGE FORM (LIBERATION IMMEDIATE)
     Route: 048
     Dates: start: 20191220

REACTIONS (1)
  - Obstructive pancreatitis [Recovered/Resolved]

NARRATIVE: CASE EVENT DATE: 20200106
